FAERS Safety Report 9238297 (Version 1)
Quarter: 2013Q1

REPORT INFORMATION
  Report Type: Spontaneous
  Country: US (occurrence: None)
  Receive Date: 20121107
  Receipt Date: 20121107
  Transmission Date: 20140127
  Serious: Yes (Hospitalization)
  Sender: FDA-Public Use
  Company Number: 2012-00727

PATIENT
  Age: 34 Year
  Sex: Female

DRUGS (3)
  1. LISINOPRIL [Suspect]
     Indication: PRODUCT USED FOR UNKNOWN INDICATION
  2. HYDROCHLOROTHIAZIDE (UNKNOWN) [Concomitant]
  3. PANTOPRAZOLE (PROTONIX) (UNKNOWN) [Concomitant]

REACTIONS (1)
  - Small bowel angioedema [None]
